FAERS Safety Report 7246229-9 (Version None)
Quarter: 2011Q1

REPORT INFORMATION
  Report Type: 
  Country: None (occurrence: None)
  Receive Date: 20110126
  Receipt Date: 20110121
  Transmission Date: 20110831
  Serious: Yes (Other)
  Sender: FDA-Public Use
  Company Number: B0695902A

PATIENT
  Age: 43 Year
  Sex: Male

DRUGS (1)
  1. BUPROPION [Suspect]
     Dosage: 150MG PER DAY
     Route: 065

REACTIONS (12)
  - ERYTHEMA MULTIFORME [None]
  - SKIN DISCOMFORT [None]
  - PSORIASIS [None]
  - PARAKERATOSIS [None]
  - DRUG ERUPTION [None]
  - ERYTHEMA [None]
  - HYPERPLASIA [None]
  - RASH PRURITIC [None]
  - OEDEMA [None]
  - LYMPHOCYTIC INFILTRATION [None]
  - NECROSIS [None]
  - EXFOLIATIVE RASH [None]
